FAERS Safety Report 25690546 (Version 1)
Quarter: 2025Q3

REPORT INFORMATION
  Report Type: Spontaneous
  Country: EU (occurrence: EU)
  Receive Date: 20250818
  Receipt Date: 20250818
  Transmission Date: 20251021
  Serious: Yes (Death, Hospitalization, Other)
  Sender: PFIZER
  Company Number: None

PATIENT
  Age: 90 Year
  Sex: Male
  Weight: 67.4 kg

DRUGS (7)
  1. PANTOPRAZOLE [Suspect]
     Active Substance: PANTOPRAZOLE
     Indication: Melaena
     Dosage: 40 MG, 1X/DAY
     Route: 048
     Dates: start: 20250630, end: 20250715
  2. PANTOPRAZOLE [Suspect]
     Active Substance: PANTOPRAZOLE
     Indication: Melaena
     Route: 042
     Dates: start: 20250625, end: 20250630
  3. APIXABAN [Concomitant]
     Active Substance: APIXABAN
  4. ALFUZOSIN HYDROCHLORIDE [Concomitant]
     Active Substance: ALFUZOSIN HYDROCHLORIDE
  5. FENOFIBRATE [Concomitant]
     Active Substance: FENOFIBRATE
  6. AMIODARONE [Concomitant]
     Active Substance: AMIODARONE
  7. POTASSIUM CHLORIDE [Concomitant]
     Active Substance: POTASSIUM CHLORIDE

REACTIONS (7)
  - Hyponatraemia [Fatal]
  - Cardiac failure [Fatal]
  - Acute kidney injury [Fatal]
  - Ventricular tachycardia [Fatal]
  - Haematuria [Fatal]
  - Malnutrition [Fatal]
  - Electrolyte imbalance [Fatal]

NARRATIVE: CASE EVENT DATE: 20250707
